FAERS Safety Report 8495848-0 (Version None)
Quarter: 2012Q3

REPORT INFORMATION
  Report Type: 
  Country: None (occurrence: None)
  Receive Date: 20120709
  Receipt Date: 20120705
  Transmission Date: 20120928
  Serious: Yes (Hospitalization, Other)
  Sender: FDA-Public Use
  Company Number: PHHY2012IT006614

PATIENT
  Sex: Female

DRUGS (5)
  1. DULOXETIME HYDROCHLORIDE [Concomitant]
     Dosage: 60 MG, QD
     Route: 048
     Dates: start: 20081001
  2. ARVENUM [Concomitant]
     Dosage: 6 DF, QD
     Route: 048
     Dates: start: 20111101
  3. DONA [Concomitant]
     Dosage: 1 DF, UNK
     Dates: start: 20111101
  4. GILENYA [Suspect]
     Indication: MULTIPLE SCLEROSIS
     Dosage: 0.5 MG, QD
     Route: 048
     Dates: start: 20110729, end: 20120119
  5. XANAX [Concomitant]
     Dosage: 0.5 MG, QD
     Route: 048
     Dates: start: 20081001

REACTIONS (3)
  - CHEST PAIN [None]
  - MUSCULOSKELETAL PAIN [None]
  - TROPONIN INCREASED [None]
